FAERS Safety Report 12631571 (Version 2)
Quarter: 2016Q3

REPORT INFORMATION
  Report Type: Spontaneous
  Country: US (occurrence: US)
  Receive Date: 20160808
  Receipt Date: 20160808
  Transmission Date: 20161109
  Serious: No
  Sender: FDA-Public Use
  Company Number: US-BEH-2015054719

PATIENT
  Sex: Female
  Weight: 75 kg

DRUGS (6)
  1. EPIPEN [Concomitant]
     Active Substance: EPINEPHRINE
     Indication: ANAPHYLACTIC REACTION
  2. LIDOCAINE. [Concomitant]
     Active Substance: LIDOCAINE
  3. PROBIOTIC [Concomitant]
     Active Substance: PROBIOTICS NOS
  4. PREDNISONE. [Concomitant]
     Active Substance: PREDNISONE
  5. ACETAMINOPHEN. [Concomitant]
     Active Substance: ACETAMINOPHEN
  6. HIZENTRA [Suspect]
     Active Substance: HUMAN IMMUNOGLOBULIN G
     Indication: HYPOGAMMAGLOBULINAEMIA
     Route: 058

REACTIONS (3)
  - Abdominal distension [Unknown]
  - Infusion site nodule [Unknown]
  - Erythema [Unknown]
